FAERS Safety Report 6559482-1 (Version None)
Quarter: 2010Q1

REPORT INFORMATION
  Report Type: 
  Country: None (occurrence: None)
  Receive Date: 20100129
  Receipt Date: 20090929
  Transmission Date: 20100710
  Serious: No
  Sender: FDA-Public Use
  Company Number: US-ABBOTT-09P-163-0595621-00

PATIENT
  Sex: Male

DRUGS (3)
  1. HUMIRA [Suspect]
     Indication: PSORIASIS
     Dosage: 80MG , 28 RIGHT THIGH
     Route: 058
     Dates: start: 20090820, end: 20090820
  2. HUMIRA [Suspect]
     Route: 058
     Dates: start: 20090828, end: 20090828
  3. DOVONEX [Concomitant]
     Indication: PSORIASIS

REACTIONS (5)
  - FATIGUE [None]
  - HYPERSENSITIVITY [None]
  - PYREXIA [None]
  - RASH [None]
  - RASH ERYTHEMATOUS [None]
